FAERS Safety Report 15061041 (Version 1)
Quarter: 2018Q3

REPORT INFORMATION
  Report Type: Spontaneous
  Country: IT (occurrence: IT)
  Receive Date: 20180625
  Receipt Date: 20180625
  Transmission Date: 20181010
  Serious: Yes (Life-Threatening)
  Sender: FDA-Public Use
  Company Number: IT-PFIZER INC-2018255534

PATIENT
  Age: 39 Year
  Sex: Female

DRUGS (3)
  1. SEROQUEL [Suspect]
     Active Substance: QUETIAPINE FUMARATE
     Dosage: 60 DF, UNK
     Route: 048
     Dates: start: 20180322, end: 20180322
  2. TAVOR (LORAZEPAM) [Suspect]
     Active Substance: LORAZEPAM
     Dosage: 3 DF, UNK
     Route: 048
     Dates: start: 20180322, end: 20180322
  3. ELOPRAM /00582602/ [Suspect]
     Active Substance: CITALOPRAM HYDROBROMIDE
     Dosage: 7 ML, UNK
     Route: 048
     Dates: start: 20180322, end: 20180322

REACTIONS (3)
  - Suicide attempt [Recovering/Resolving]
  - Anticholinergic syndrome [Recovering/Resolving]
  - Drug abuse [Recovering/Resolving]

NARRATIVE: CASE EVENT DATE: 20180322
